FAERS Safety Report 8052110-8 (Version None)
Quarter: 2012Q1

REPORT INFORMATION
  Report Type: 
  Country: None (occurrence: None)
  Receive Date: 20120118
  Receipt Date: 20120112
  Transmission Date: 20120608
  Serious: No
  Sender: FDA-Public Use
  Company Number: US-PFIZER INC-2012010916

PATIENT
  Sex: Female
  Weight: 86.2 kg

DRUGS (4)
  1. EFFEXOR XR [Suspect]
     Indication: DEPRESSION
     Dosage: 150 MG
     Dates: start: 20111001
  2. EFFEXOR XR [Suspect]
     Dosage: 225 MG
  3. EFFEXOR XR [Suspect]
     Dosage: 225 MG
     Dates: start: 20120105, end: 20120112
  4. PREVACID [Concomitant]
     Indication: GASTROOESOPHAGEAL REFLUX DISEASE
     Dosage: 300 MG

REACTIONS (5)
  - FATIGUE [None]
  - EMOTIONAL DISORDER [None]
  - EXPIRED DRUG ADMINISTERED [None]
  - HEADACHE [None]
  - IRRITABILITY [None]
